FAERS Safety Report 4334830-1 (Version None)
Quarter: 2004Q2

REPORT INFORMATION
  Report Type: 
  Country: None (occurrence: None)
  Receive Date: 20040405
  Receipt Date: 20040324
  Transmission Date: 20050107
  Serious: Yes (Death, Hospitalization)
  Sender: FDA-Public Use
  Company Number: ES-JNJFOC-20040300298

PATIENT
  Age: 69 Year
  Sex: Female

DRUGS (6)
  1. REMICADE [Suspect]
     Indication: RHEUMATOID ARTHRITIS
     Dosage: 300 MG, 1 IN 6 WEEK, INTRAVENOUS
     Route: 042
     Dates: start: 20010101
  2. REMICADE [Suspect]
     Indication: RHEUMATOID ARTHRITIS
     Dosage: 300 MG, 1 IN 6 WEEK, INTRAVENOUS
     Route: 042
     Dates: start: 20030601
  3. ISONIAZID [Concomitant]
  4. METHOTREXATE [Concomitant]
  5. ARAVA [Concomitant]
  6. CELEBREX [Concomitant]

REACTIONS (6)
  - CEREBROVASCULAR ACCIDENT [None]
  - GASTROINTESTINAL TOXICITY [None]
  - PERITONEAL TUBERCULOSIS [None]
  - RENAL IMPAIRMENT [None]
  - SECONDARY AMYLOIDOSIS [None]
  - TUBERCULOSIS GASTROINTESTINAL [None]
